FAERS Safety Report 19128107 (Version 1)
Quarter: 2021Q2

REPORT INFORMATION
  Report Type: Spontaneous
  Country: US (occurrence: US)
  Receive Date: 20210413
  Receipt Date: 20210413
  Transmission Date: 20210717
  Serious: No
  Sender: FDA-Public Use
  Company Number: None

PATIENT
  Age: 52 Year
  Sex: Female
  Weight: 69.75 kg

DRUGS (1)
  1. LEVOTHYROXINE. [Suspect]
     Active Substance: LEVOTHYROXINE
     Indication: HYPOTHYROIDISM
     Dosage: ?          QUANTITY:1 TABLET(S);?
     Route: 048
     Dates: start: 20210319, end: 20210412

REACTIONS (6)
  - Rash [None]
  - Product quality issue [None]
  - Pruritus [None]
  - Discomfort [None]
  - Pain [None]
  - Eyelid rash [None]

NARRATIVE: CASE EVENT DATE: 20210406
